FAERS Safety Report 7338321-5 (Version None)
Quarter: 2011Q1

REPORT INFORMATION
  Report Type: 
  Country: None (occurrence: None)
  Receive Date: 20110308
  Receipt Date: 20110224
  Transmission Date: 20110831
  Serious: Yes (Other)
  Sender: FDA-Public Use
  Company Number: JP-BAYER-200911144BYL

PATIENT
  Age: 70 Year
  Sex: Male
  Weight: 63.4 kg

DRUGS (11)
  1. NEXAVAR [Suspect]
     Dosage: 400 MG (DAILY DOSE), , ORAL
     Route: 048
     Dates: start: 20090911
  2. NEXAVAR [Suspect]
     Indication: RENAL CELL CARCINOMA
     Dosage: 800 MG (DAILY DOSE), , ORAL
     Route: 048
     Dates: start: 20090203, end: 20090206
  3. NEXAVAR [Suspect]
     Dosage: 400 MG (DAILY DOSE), , ORAL
     Route: 048
     Dates: start: 20090305, end: 20090311
  4. PURSENNID [Concomitant]
     Dosage: 24 MG (DAILY DOSE), , ORAL
     Route: 048
     Dates: start: 20080519
  5. NEXAVAR [Suspect]
     Dosage: 200 MG (DAILY DOSE), , ORAL
     Route: 048
     Dates: start: 20090312, end: 20090910
  6. GASTER D [Concomitant]
     Indication: PROPHYLAXIS AGAINST GASTROINTESTINAL ULCER
     Dosage: 20 MG (DAILY DOSE), , ORAL
     Route: 048
     Dates: start: 20090113
  7. MICARDIS [Concomitant]
     Dosage: 80 MG (DAILY DOSE), , ORAL
     Route: 048
     Dates: start: 20081007
  8. ARTIST [Concomitant]
     Dosage: 20 MG (DAILY DOSE), , ORAL
     Route: 048
     Dates: start: 20080111
  9. SERMION [Concomitant]
     Indication: CEREBROVASCULAR DISORDER
     Dosage: 10 MG (DAILY DOSE), , ORAL
     Route: 048
     Dates: start: 20080512
  10. KETOPROFEN [Concomitant]
     Route: 062
     Dates: start: 20080517, end: 20090303
  11. ASPIRIN [Concomitant]
     Indication: PROPHYLAXIS
     Dosage: 100 MG (DAILY DOSE), , ORAL
     Route: 048
     Dates: start: 20080516

REACTIONS (3)
  - PANCREATIC ENZYMES INCREASED [None]
  - HYPERTENSION [None]
  - HEPATIC FUNCTION ABNORMAL [None]
